FAERS Safety Report 10501359 (Version 2)
Quarter: 2014Q4

REPORT INFORMATION
  Report Type: Spontaneous
  Country: ES (occurrence: ES)
  Receive Date: 20141007
  Receipt Date: 20141016
  Transmission Date: 20150528
  Serious: Yes (Other)
  Sender: FDA-Public Use
  Company Number: ES-JNJFOC-20140924151

PATIENT
  Sex: Female
  Weight: 54 kg

DRUGS (1)
  1. STELARA [Suspect]
     Active Substance: USTEKINUMAB
     Indication: PSORIASIS
     Route: 058
     Dates: start: 201208, end: 201311

REACTIONS (5)
  - Skin lesion [Unknown]
  - Pruritus [Unknown]
  - Device breakage [Not Recovered/Not Resolved]
  - Skin plaque [Unknown]
  - Koebner phenomenon [Unknown]

NARRATIVE: CASE EVENT DATE: 2014
